FAERS Safety Report 4678288-1 (Version None)
Quarter: 2005Q2

REPORT INFORMATION
  Report Type: 
  Country: None (occurrence: None)
  Receive Date: 20050527
  Receipt Date: 20050512
  Transmission Date: 20051028
  Serious: Yes (Hospitalization)
  Sender: FDA-Public Use
  Company Number: 200510611GDS

PATIENT
  Age: 23 Year
  Sex: Female

DRUGS (6)
  1. NAPROXEN SODIUM [Suspect]
     Indication: VIRAL INFECTION
     Dosage: ORAL
     Route: 048
     Dates: start: 20041230
  2. ACETYLSALICYLIC ACID SRT [Suspect]
     Dates: start: 20041230
  3. DI-ANTALVIC [Concomitant]
  4. ADVIL [Suspect]
     Dosage: ORAL
     Route: 048
     Dates: start: 20041230
  5. PANOS (TETRAZEPAM) [Suspect]
     Dates: start: 20041230
  6. CHINESE HERBS (HERBAL PREPARATION) [Suspect]
     Dosage: ORAL
     Route: 048

REACTIONS (1)
  - STEVENS-JOHNSON SYNDROME [None]
